FAERS Safety Report 9477822 (Version 1)
Quarter: 2013Q3

REPORT INFORMATION
  Report Type: Spontaneous
  Country: US (occurrence: None)
  Receive Date: 20130826
  Receipt Date: 20130826
  Transmission Date: 20140515
  Serious: Yes (Life-Threatening, Hospitalization, Disabling, Other)
  Sender: FDA-Public Use
  Company Number: None

PATIENT
  Age: 60 Year
  Sex: Female
  Weight: 40.82 kg

DRUGS (10)
  1. HUMIRA [Suspect]
     Indication: CROHN^S DISEASE
     Dosage: INJECT 160 MG SUBCUTANEOUSLY ON WEEK 0 + 80 MG ON WEEK1?QUANTITY:  #6 DOSE TRAYS (EACH CONTAINING 1 SINGLE USE PREFILLED PEN
     Dates: start: 20120803, end: 20120823
  2. XIFAXAN [Concomitant]
  3. FORTEO [Concomitant]
  4. CANASA [Concomitant]
  5. FLORASTOR [Concomitant]
  6. B12 [Concomitant]
  7. D3 [Concomitant]
  8. BIOTIN [Concomitant]
  9. CITRACAL CITRATE+D3...VHD 500IU,CALCIUM 400MG, SODIUM 5MG) [Concomitant]
  10. ACIDOOPHILUSW/BIFIDUM [Concomitant]

REACTIONS (3)
  - Vomiting [None]
  - Lung disorder [None]
  - Unevaluable event [None]
